FAERS Safety Report 25089739 (Version 1)
Quarter: 2025Q1

REPORT INFORMATION
  Report Type: Spontaneous
  Country: US (occurrence: US)
  Receive Date: 20250318
  Receipt Date: 20250318
  Transmission Date: 20250409
  Serious: Yes (Hospitalization)
  Sender: CIPLA
  Company Number: US-CIPLA LTD.-2025US03172

PATIENT

DRUGS (1)
  1. SEVELAMER [Suspect]
     Active Substance: SEVELAMER
     Indication: Hyperphosphataemia
     Dosage: 1600 MILLIGRAM, TID (THREE TIMES WITH MEAL)
     Route: 065

REACTIONS (3)
  - Anaemia [Unknown]
  - Gastrointestinal injury [Recovered/Resolved]
  - Crystal deposit intestine [Recovered/Resolved]
